FAERS Safety Report 5796071-0 (Version None)
Quarter: 2008Q3

REPORT INFORMATION
  Report Type: 
  Country: None (occurrence: None)
  Receive Date: 20080701
  Receipt Date: 20080623
  Transmission Date: 20090109
  Serious: Yes (Death)
  Sender: FDA-Public Use
  Company Number: US-WYE-H02294908

PATIENT
  Sex: Male
  Weight: 87.4 kg

DRUGS (10)
  1. TORISEL [Suspect]
     Indication: RENAL CELL CARCINOMA
     Dosage: PATIENT RECEIVED 4 TO 5 DROPS OF THE 25 MG INFUSION
     Route: 042
     Dates: start: 20080122, end: 20080122
  2. WARFARIN SODIUM [Concomitant]
  3. METOPROLOL [Concomitant]
  4. PERCOCET [Concomitant]
     Dosage: 1 EVERY 4 HOURS AS NEEDED
     Route: 065
  5. GLYBURIDE [Concomitant]
     Route: 065
  6. MIRALAX [Concomitant]
  7. AVODART [Concomitant]
     Route: 065
  8. FLOMAX [Concomitant]
     Route: 065
  9. ALEVE [Concomitant]
     Route: 065
  10. ADVAIR DISKUS 100/50 [Concomitant]
     Route: 055

REACTIONS (1)
  - ANAPHYLACTIC REACTION [None]
